FAERS Safety Report 24360381 (Version 1)
Quarter: 2024Q3

REPORT INFORMATION
  Report Type: Spontaneous
  Country: US (occurrence: US)
  Receive Date: 20240925
  Receipt Date: 20240925
  Transmission Date: 20241017
  Serious: No
  Sender: AMGEN
  Company Number: US-AMGEN-USASP2024188050

PATIENT
  Age: 61 Year
  Sex: Female
  Weight: 66.213 kg

DRUGS (6)
  1. NEULASTA [Suspect]
     Active Substance: PEGFILGRASTIM
     Indication: Prophylaxis
     Dosage: UNK
     Route: 065
  2. NEULASTA [Suspect]
     Active Substance: PEGFILGRASTIM
     Dosage: UNK
     Route: 065
  3. DOCETAXEL [Concomitant]
     Active Substance: DOCETAXEL\DOCETAXEL ANHYDROUS
  4. CARBOPLATIN [Concomitant]
     Active Substance: CARBOPLATIN
  5. TRASTUZUMAB [Concomitant]
     Active Substance: TRASTUZUMAB
  6. PERTUZUMAB [Concomitant]
     Active Substance: PERTUZUMAB

REACTIONS (2)
  - Device leakage [Unknown]
  - Accidental exposure to product [Unknown]

NARRATIVE: CASE EVENT DATE: 20240918
